FAERS Safety Report 11473788 (Version 2)
Quarter: 2015Q4

REPORT INFORMATION
  Report Type: Spontaneous
  Country: US (occurrence: US)
  Receive Date: 20150908
  Receipt Date: 20151221
  Transmission Date: 20160304
  Serious: Yes (Other)
  Sender: FDA-Public Use
  Company Number: US-TEVA-591091USA

PATIENT
  Age: 72 Year
  Sex: Female

DRUGS (2)
  1. TICLOPIDINE [Suspect]
     Active Substance: TICLOPIDINE
     Indication: PRODUCT USED FOR UNKNOWN INDICATION
     Dosage: 500 MILLIGRAM DAILY;
     Route: 065
  2. PLAVIX [Suspect]
     Active Substance: CLOPIDOGREL BISULFATE
     Route: 065

REACTIONS (5)
  - Adverse event [Unknown]
  - Dyspnoea [Recovering/Resolving]
  - Intracranial aneurysm [Unknown]
  - Contusion [Recovering/Resolving]
  - Epistaxis [Recovering/Resolving]
